FAERS Safety Report 12586542 (Version 1)
Quarter: 2016Q3

REPORT INFORMATION
  Report Type: Spontaneous
  Country: US (occurrence: None)
  Receive Date: 20160722
  Receipt Date: 20160722
  Transmission Date: 20161109
  Serious: Yes (Hospitalization)
  Sender: FDA-Public Use
  Company Number: None

PATIENT
  Age: 36 Year
  Sex: Female
  Weight: 88.45 kg

DRUGS (4)
  1. AZITHROMYCIN PLIVA [Suspect]
     Active Substance: AZITHROMYCIN ANHYDROUS
     Indication: PNEUMONIA
     Route: 048
     Dates: start: 20160516, end: 20160517
  2. IRON SULFATE [Concomitant]
     Active Substance: FERROUS SULFATE ANHYDROUS
  3. VISTARIL [Concomitant]
     Active Substance: HYDROXYZINE PAMOATE
  4. VITAMIN D [Concomitant]
     Active Substance: CHOLECALCIFEROL

REACTIONS (6)
  - Anxiety [None]
  - Diarrhoea [None]
  - Dizziness [None]
  - Palpitations [None]
  - Nightmare [None]
  - Chest pain [None]

NARRATIVE: CASE EVENT DATE: 20160516
